FAERS Safety Report 6761468-9 (Version None)
Quarter: 2010Q2

REPORT INFORMATION
  Report Type: 
  Country: None (occurrence: None)
  Receive Date: 20100607
  Receipt Date: 20100526
  Transmission Date: 20101027
  Serious: Yes (Hospitalization)
  Sender: FDA-Public Use
  Company Number: LEO-2010-00483(0)

PATIENT
  Sex: Female

DRUGS (3)
  1. INNOHEP [Suspect]
     Indication: ACTIVATED PROTEIN C RESISTANCE
     Dosage: 4500 IU (4500 IU, 1 IN 1 D), SUBCUTANEOUS
     Route: 058
     Dates: start: 20100201
  2. INNOHEP [Suspect]
     Indication: THROMBOSIS PROPHYLAXIS
     Dosage: 4500 IU (4500 IU, 1 IN 1 D), SUBCUTANEOUS
     Route: 058
     Dates: start: 20100201
  3. LERGIGAN COMP (CAFFEINE, PROMETHAZINE, HYDROCHLORIDE, EPHEDRINE SULFAT [Concomitant]

REACTIONS (7)
  - DRUG EXPOSURE DURING PREGNANCY [None]
  - ERYTHEMA [None]
  - HAEMATOMA [None]
  - OEDEMA PERIPHERAL [None]
  - PAIN IN EXTREMITY [None]
  - PYREXIA [None]
  - WHITE BLOOD CELL COUNT DECREASED [None]
